FAERS Safety Report 9621429 (Version 1)
Quarter: 2013Q4

REPORT INFORMATION
  Report Type: Spontaneous
  Country: US (occurrence: US)
  Receive Date: 20131015
  Receipt Date: 20131015
  Transmission Date: 20140711
  Serious: Yes (Hospitalization, Other)
  Sender: FDA-Public Use
  Company Number: US-B.I. PHARMACEUTICALS,INC./RIDGEFIELD-2013-BI-31831BP

PATIENT
  Sex: Female

DRUGS (4)
  1. SPIRIVA [Suspect]
     Indication: CHRONIC OBSTRUCTIVE PULMONARY DISEASE
     Route: 055
     Dates: start: 2007
  2. ADVAIR [Suspect]
     Indication: CHRONIC OBSTRUCTIVE PULMONARY DISEASE
     Dosage: 50/500 MCG
     Route: 055
     Dates: start: 2007
  3. ALAVERT [Concomitant]
  4. COMBIVENT [Concomitant]

REACTIONS (11)
  - Cataract [Recovered/Resolved]
  - Atelectasis [Unknown]
  - Dyspnoea [Unknown]
  - Wheezing [Unknown]
  - Clavicle fracture [Not Recovered/Not Resolved]
  - Bone operation [Not Recovered/Not Resolved]
  - Fall [Not Recovered/Not Resolved]
  - Drug ineffective [Unknown]
  - Laceration [Unknown]
  - Contusion [Unknown]
  - Osteoporosis [Unknown]
